FAERS Safety Report 6719225-5 (Version None)
Quarter: 2010Q2

REPORT INFORMATION
  Report Type: 
  Country: None (occurrence: None)
  Receive Date: 20100510
  Receipt Date: 20100510
  Transmission Date: 20101027
  Serious: Yes (Hospitalization)
  Sender: FDA-Public Use
  Company Number: None

PATIENT
  Sex: Female
  Weight: 65 kg

DRUGS (6)
  1. PEG-L ASPARAGINASE (K-H) [Suspect]
     Dosage: 4425 IU
  2. VINCRISTINE SULFATE [Suspect]
     Dosage: 6 MG
  3. CYCLOPHOSPHAMIDE [Suspect]
     Dosage: 3540 MG
  4. CYTARABINE [Suspect]
     Dosage: 2128 MG
  5. MERCAPTOPURINE [Suspect]
     Dosage: 3000 MG
  6. METHOTREXATE [Suspect]
     Dosage: 30 MG

REACTIONS (1)
  - DRUG HYPERSENSITIVITY [None]
